FAERS Safety Report 8196720-6 (Version None)
Quarter: 2012Q1

REPORT INFORMATION
  Report Type: 
  Country: None (occurrence: None)
  Receive Date: 20120309
  Receipt Date: 20120306
  Transmission Date: 20120608
  Serious: Yes (Death)
  Sender: FDA-Public Use
  Company Number: PHHY2012BG019815

PATIENT
  Sex: Male

DRUGS (5)
  1. INDAPAMIDE [Concomitant]
     Dosage: 1 DF, QD
  2. BISOPROLOL FUMARATE [Concomitant]
     Dosage: 5 MG, TID
  3. RASILEZ [Suspect]
     Indication: HYPERTENSION
     Dosage: 300 MG/DAILY
     Dates: start: 20110322
  4. PRESTARIUM-CO [Concomitant]
     Dosage: 1 DF, QD
  5. MOXONIDINE [Concomitant]
     Dosage: 0.4 MG, QD

REACTIONS (2)
  - OEDEMA PERIPHERAL [None]
  - SUDDEN DEATH [None]
